FAERS Safety Report 6914979-7 (Version None)
Quarter: 2010Q3

REPORT INFORMATION
  Report Type: 
  Country: None (occurrence: None)
  Receive Date: 20100804
  Receipt Date: 20100722
  Transmission Date: 20110219
  Serious: Yes (Hospitalization)
  Sender: FDA-Public Use
  Company Number: 7001594

PATIENT
  Age: 21 Year
  Sex: Female

DRUGS (3)
  1. REBIF [Suspect]
     Indication: MULTIPLE SCLEROSIS
     Dosage: 44 MCG, 3 IN 1 WK, SUBCUTANEOUS
     Route: 058
     Dates: start: 20090801
  2. UNSPECIFIED MEDICATIONS (ALL OTHER THERAPEUTIC [Concomitant]
  3. VITAMINS [Concomitant]

REACTIONS (3)
  - FEELING ABNORMAL [None]
  - OVARIAN CYST [None]
  - URINARY RETENTION [None]
